FAERS Safety Report 4743449-X (Version None)
Quarter: 2005Q3

REPORT INFORMATION
  Report Type: 
  Country: None (occurrence: None)
  Receive Date: 20050809
  Receipt Date: 20050726
  Transmission Date: 20060218
  Serious: No
  Sender: FDA-Public Use
  Company Number: MK200506-0126-2

PATIENT
  Age: 45 Year
  Sex: Female

DRUGS (1)
  1. HEXABRIX [Suspect]
     Indication: ARTHROGRAM
     Dosage: 7 ML, SINGLE USE, IA

REACTIONS (6)
  - CONTRAST MEDIA REACTION [None]
  - DRUG HYPERSENSITIVITY [None]
  - LATENT TETANY [None]
  - PYREXIA [None]
  - TACHYPNOEA [None]
  - TREMOR [None]
